FAERS Safety Report 17570447 (Version 1)
Quarter: 2020Q1

REPORT INFORMATION
  Report Type: Spontaneous
  Country: US (occurrence: US)
  Receive Date: 20200323
  Receipt Date: 20200323
  Transmission Date: 20200409
  Serious: Yes (Hospitalization)
  Sender: FDA-Public Use
  Company Number: US-AKCEA THERAPEUTICS-2020IS001121

PATIENT

DRUGS (1)
  1. TEGSEDI [Suspect]
     Active Substance: INOTERSEN SODIUM
     Indication: CARDIAC AMYLOIDOSIS
     Dosage: 284 MG, QW
     Route: 058
     Dates: start: 20190731

REACTIONS (1)
  - Umbilical hernia [Unknown]
